FAERS Safety Report 23731037 (Version 1)
Quarter: 2024Q2

REPORT INFORMATION
  Report Type: Report from Study
  Country: US (occurrence: US)
  Receive Date: 20240411
  Receipt Date: 20240411
  Transmission Date: 20240715
  Serious: No
  Sender: FDA-Public Use
  Company Number: US-DECIPHERA PHARMACEUTICALS LLC-2024US000256

PATIENT
  Age: 44 Year
  Sex: Male

DRUGS (3)
  1. QINLOCK [Suspect]
     Active Substance: RIPRETINIB
     Indication: Product used for unknown indication
     Dosage: 150 MILLIGRAM, QD
  2. QINLOCK [Suspect]
     Active Substance: RIPRETINIB
     Dosage: 150 MILLIGRAM, BID
  3. QINLOCK [Suspect]
     Active Substance: RIPRETINIB
     Dosage: 150 MILLIGRAM, QD

REACTIONS (4)
  - Neoplasm progression [Unknown]
  - Disease progression [Unknown]
  - Extra dose administered [Unknown]
  - Therapy interrupted [Unknown]

NARRATIVE: CASE EVENT DATE: 20230901
